FAERS Safety Report 10645285 (Version 1)
Quarter: 2014Q4

REPORT INFORMATION
  Report Type: Spontaneous
  Country: US (occurrence: None)
  Receive Date: 20141202
  Receipt Date: 20141202
  Transmission Date: 20150529
  Serious: No
  Sender: FDA-Public Use
  Company Number: 2014TUS001295

PATIENT
  Age: 63 Year
  Sex: Male
  Weight: 79.4 kg

DRUGS (4)
  1. XANAX [Concomitant]
     Active Substance: ALPRAZOLAM
  2. KLONOPIN [Concomitant]
     Active Substance: CLONAZEPAM
  3. NEURONTIN [Concomitant]
     Active Substance: GABAPENTIN
  4. KAZANO [Suspect]
     Active Substance: ALOGLIPTIN BENZOATE\METFORMIN HYDROCHLORIDE
     Indication: TYPE 2 DIABETES MELLITUS
     Dates: start: 20140220

REACTIONS (2)
  - Somnolence [None]
  - Hypersomnia [None]

NARRATIVE: CASE EVENT DATE: 20140221
